FAERS Safety Report 9470507 (Version 1)
Quarter: 2013Q3

REPORT INFORMATION
  Report Type: Spontaneous
  Country: US (occurrence: US)
  Receive Date: 20130822
  Receipt Date: 20130822
  Transmission Date: 20140515
  Serious: Yes (Hospitalization)
  Sender: FDA-Public Use
  Company Number: US-JNJFOC-20130807768

PATIENT
  Age: 75 Year
  Sex: Male
  Weight: 88.45 kg

DRUGS (4)
  1. XARELTO [Suspect]
     Indication: PULMONARY THROMBOSIS
     Route: 048
     Dates: start: 20130726, end: 20130728
  2. XARELTO [Suspect]
     Indication: THROMBOSIS
     Route: 048
     Dates: start: 20130726, end: 20130728
  3. OXYCODONE [Concomitant]
     Indication: PAIN
     Route: 065
  4. ZYRTEC [Concomitant]
     Indication: MULTIPLE ALLERGIES
     Route: 065

REACTIONS (4)
  - Epistaxis [Recovered/Resolved]
  - Blood urine present [Recovered/Resolved]
  - Haemoptysis [Recovered/Resolved]
  - Haemoglobin decreased [Unknown]
